FAERS Safety Report 6036419-5 (Version None)
Quarter: 2009Q1

REPORT INFORMATION
  Report Type: 
  Country: None (occurrence: None)
  Receive Date: 20090113
  Receipt Date: 20090107
  Transmission Date: 20090719
  Serious: Yes (Hospitalization)
  Sender: FDA-Public Use
  Company Number: US-GILEAD-2008-0019642

PATIENT
  Sex: Female
  Weight: 64.014 kg

DRUGS (19)
  1. LETAIRIS [Suspect]
     Indication: PULMONARY ARTERIAL HYPERTENSION
     Route: 048
     Dates: start: 20080521, end: 20081228
  2. PLAQUENIL [Concomitant]
     Route: 048
  3. ACTONEL [Concomitant]
     Route: 048
  4. LEFLUNOMIDE [Concomitant]
     Route: 048
  5. PREDNISONE TAB [Concomitant]
     Route: 048
  6. OXYCONTIN [Concomitant]
     Route: 048
  7. COZAAR [Concomitant]
     Route: 048
  8. LASIX [Concomitant]
  9. NEXIUM [Concomitant]
     Route: 048
  10. PROTONIX [Concomitant]
     Route: 048
  11. REGLAN [Concomitant]
  12. ASPIRIN [Concomitant]
  13. POTASSIUM CHLORIDE [Concomitant]
  14. CALCIUM + D [Concomitant]
  15. MULTI-VITAMIN [Concomitant]
  16. IRON [Concomitant]
  17. FOLIC ACID [Concomitant]
  18. LUMIGAN [Concomitant]
     Route: 047
  19. ALPHAGAN OPHTHALMIC [Concomitant]
     Route: 047

REACTIONS (2)
  - DIVERTICULAR PERFORATION [None]
  - LIVER FUNCTION TEST ABNORMAL [None]
